FAERS Safety Report 5719916-9 (Version None)
Quarter: 2008Q2

REPORT INFORMATION
  Report Type: 
  Country: None (occurrence: None)
  Receive Date: 20080428
  Receipt Date: 20080418
  Transmission Date: 20081010
  Serious: Yes (Other)
  Sender: FDA-Public Use
  Company Number: CHNY2008NO01523

PATIENT
  Age: 68 Year
  Sex: Female

DRUGS (1)
  1. VOLTAREN [Suspect]
     Dosage: TWO APPLICATIONS / DAY
     Route: 061

REACTIONS (1)
  - ALANINE AMINOTRANSFERASE INCREASED [None]
